FAERS Safety Report 12187207 (Version 1)
Quarter: 2016Q1

REPORT INFORMATION
  Report Type: Spontaneous
  Country: US (occurrence: None)
  Receive Date: 20160316
  Receipt Date: 20160316
  Transmission Date: 20160526
  Serious: Yes (Disabling)
  Sender: FDA-Public Use
  Company Number: None

PATIENT
  Age: 20 Year
  Sex: Female
  Weight: 54.43 kg

DRUGS (3)
  1. BEYAZ [Concomitant]
     Active Substance: DROSPIRENONE\ETHINYL ESTRADIOL\LEVOMEFOLATE CALCIUM
  2. ZYRTEC [Suspect]
     Active Substance: CETIRIZINE HYDROCHLORIDE
     Indication: ALLERGY TO ANIMAL
     Dosage: 1 PILL ONCE DAILY TAKEN BY MOUTH
     Route: 048
  3. ZYRTEC [Suspect]
     Active Substance: CETIRIZINE HYDROCHLORIDE
     Indication: SEASONAL ALLERGY
     Dosage: 1 PILL ONCE DAILY TAKEN BY MOUTH
     Route: 048

REACTIONS (10)
  - Headache [None]
  - Drug dose omission [None]
  - Nausea [None]
  - Urticaria [None]
  - Insomnia [None]
  - Depression [None]
  - Drug withdrawal syndrome [None]
  - Pruritus [None]
  - Fatigue [None]
  - Sinus disorder [None]

NARRATIVE: CASE EVENT DATE: 20160313
